FAERS Safety Report 14300563 (Version 1)
Quarter: 2017Q4

REPORT INFORMATION
  Report Type: Spontaneous
  Country: US (occurrence: US)
  Receive Date: 20171218
  Receipt Date: 20171218
  Transmission Date: 20180321
  Serious: No
  Sender: FDA-Public Use
  Company Number: None

PATIENT
  Age: 57 Year
  Sex: Female

DRUGS (1)
  1. TYMLOS [Suspect]
     Active Substance: ABALOPARATIDE
     Route: 058
     Dates: start: 20171201, end: 20171218

REACTIONS (3)
  - Dyspnoea [None]
  - Rib fracture [None]
  - Middle insomnia [None]

NARRATIVE: CASE EVENT DATE: 20171214
